FAERS Safety Report 4431486-4 (Version None)
Quarter: 2004Q3

REPORT INFORMATION
  Report Type: 
  Country: None (occurrence: None)
  Receive Date: 20040818
  Receipt Date: 20040805
  Transmission Date: 20050211
  Serious: No
  Sender: FDA-Public Use
  Company Number: BDI-006357

PATIENT
  Age: 74 Year
  Sex: Female

DRUGS (4)
  1. RENO-60 [Suspect]
     Indication: BREAST DISCHARGE
     Dosage: 0.4 ML ONCE SY
     Dates: start: 20040713, end: 20040713
  2. RENO-60 [Suspect]
     Indication: GALACTOGRAPHY
     Dosage: 0.4 ML ONCE SY
     Dates: start: 20040713, end: 20040713
  3. RENO-60 [Suspect]
     Indication: BREAST DISCHARGE
     Dosage: 0.6 ML ONCE SY
     Dates: start: 20040713, end: 20040713
  4. RENO-60 [Suspect]
     Indication: GALACTOGRAPHY
     Dosage: 0.6 ML ONCE SY
     Dates: start: 20040713, end: 20040713

REACTIONS (21)
  - ANION GAP DECREASED [None]
  - BACTERIA URINE [None]
  - BLISTER [None]
  - BREAST DISCOMFORT [None]
  - BREAST DISORDER [None]
  - BREAST NECROSIS [None]
  - BREAST PAIN [None]
  - BREAST SWELLING [None]
  - BURNING SENSATION [None]
  - CHILLS [None]
  - DERMATITIS EXFOLIATIVE [None]
  - DRUG INEFFECTIVE [None]
  - ERYTHEMA [None]
  - HAEMOGLOBIN DECREASED [None]
  - LYMPHOCYTE COUNT DECREASED [None]
  - MONOCYTE COUNT INCREASED [None]
  - PLATELET COUNT INCREASED [None]
  - PYREXIA [None]
  - URINARY SEDIMENT PRESENT [None]
  - URINE ABNORMALITY [None]
  - WHITE BLOOD CELL COUNT DECREASED [None]
